FAERS Safety Report 4727063-8 (Version None)
Quarter: 2005Q3

REPORT INFORMATION
  Report Type: 
  Country: None (occurrence: None)
  Receive Date: 20050728
  Receipt Date: 20050718
  Transmission Date: 20060218
  Serious: Yes (Other)
  Sender: FDA-Public Use
  Company Number: GB-ABBOTT-05P-167-0306008-00

PATIENT
  Age: 54 Year
  Sex: Male
  Weight: 87 kg

DRUGS (5)
  1. HUMIRA [Suspect]
     Indication: SERONEGATIVE ARTHRITIS
     Route: 058
     Dates: start: 20040716, end: 20050620
  2. ACETAMINOPHEN W/ CODEINE [Concomitant]
     Indication: ARTHRITIS
  3. FUCICORT [Concomitant]
     Indication: ECZEMA
  4. DIPROBASE CREAM [Concomitant]
     Indication: ECZEMA
  5. HYDROXYZINE HCL [Concomitant]
     Indication: DRUG USE FOR UNKNOWN INDICATION

REACTIONS (5)
  - CELLULITIS [None]
  - ECZEMA [None]
  - EOSINOPHILIA [None]
  - INJECTION SITE ERYTHEMA [None]
  - INJECTION SITE PRURITUS [None]
